FAERS Safety Report 4651097-5 (Version None)
Quarter: 2005Q2

REPORT INFORMATION
  Report Type: 
  Country: None (occurrence: None)
  Receive Date: 20050503
  Receipt Date: 20050427
  Transmission Date: 20051028
  Serious: Yes (Hospitalization)
  Sender: FDA-Public Use
  Company Number: AU-ROCHE-402948

PATIENT
  Age: 43 Year
  Sex: Female
  Weight: 55 kg

DRUGS (6)
  1. PEG-INTERFERON ALFA 2A (RO 25-8310) [Suspect]
     Route: 058
     Dates: start: 20011029, end: 20011217
  2. PEG-INTERFERON ALFA 2A (RO 25-8310) [Suspect]
     Route: 058
     Dates: start: 20011231
  3. PEG-INTERFERON ALFA 2A (RO 25-8310) [Suspect]
     Route: 058
  4. RIBAVIRIN [Suspect]
     Route: 048
     Dates: start: 20011029
  5. RIBAVIRIN [Suspect]
     Route: 048
  6. CIPRAMIL [Concomitant]

REACTIONS (4)
  - CELLULITIS [None]
  - HEADACHE [None]
  - MENORRHAGIA [None]
  - THROMBOCYTOPENIA [None]
